FAERS Safety Report 20709571 (Version 1)
Quarter: 2022Q2

REPORT INFORMATION
  Report Type: Spontaneous
  Country: US (occurrence: None)
  Receive Date: 20220413
  Receipt Date: 20220413
  Transmission Date: 20220721
  Serious: Yes (Other)
  Sender: FDA-Public Use
  Company Number: None

PATIENT
  Age: 70 Year
  Sex: Female
  Weight: 54.45 kg

DRUGS (9)
  1. FENTANYL TRANSDERMAL SYSTEM [Suspect]
     Active Substance: FENTANYL
     Indication: Spinal pain
     Dosage: OTHER STRENGTH : 75 MCG/HR;?OTHER QUANTITY : 10 PATCH(ES);?OTHER FREQUENCY : 72 HOURS;?
     Route: 062
  2. FENTANYL TRANSDERMAL SYSTEM [Concomitant]
     Active Substance: FENTANYL
  3. LANSOPROLOL [Concomitant]
  4. OXYBUTININ CHLORIDE [Concomitant]
  5. OXYCODONE [Concomitant]
     Active Substance: OXYCODONE
  6. VITAMIN D [Concomitant]
     Active Substance: VITAMIN D NOS
  7. PREBIOTIC [Concomitant]
  8. CALCIUM\MAGNESIUM [Concomitant]
     Active Substance: CALCIUM\MAGNESIUM
  9. VITAMINS [Concomitant]
     Active Substance: VITAMINS

REACTIONS (6)
  - Product substitution issue [None]
  - Drug effect less than expected [None]
  - Inadequate analgesia [None]
  - Product adhesion issue [None]
  - Impaired quality of life [None]
  - Loss of personal independence in daily activities [None]

NARRATIVE: CASE EVENT DATE: 20220411
